FAERS Safety Report 7852266-3 (Version None)
Quarter: 2011Q4

REPORT INFORMATION
  Report Type: 
  Country: None (occurrence: None)
  Receive Date: 20111026
  Receipt Date: 20111012
  Transmission Date: 20120403
  Serious: Yes (Other)
  Sender: FDA-Public Use
  Company Number: US-ELI_LILLY_AND_COMPANY-US201007002323

PATIENT
  Sex: Female

DRUGS (2)
  1. FORTEO [Suspect]
     Dosage: 20 UG, QD
  2. FORTEO [Suspect]
     Indication: OSTEOPOROSIS
     Dosage: 20 UG, QD

REACTIONS (6)
  - LACUNAR INFARCTION [None]
  - BLOOD PRESSURE DECREASED [None]
  - FALL [None]
  - BONE DENSITY DECREASED [None]
  - BLOOD PRESSURE ORTHOSTATIC ABNORMAL [None]
  - DISORIENTATION [None]
